FAERS Safety Report 8533374-0 (Version None)
Quarter: 2012Q3

REPORT INFORMATION
  Report Type: 
  Country: None (occurrence: None)
  Receive Date: 20120724
  Receipt Date: 20120717
  Transmission Date: 20120928
  Serious: Yes (Other)
  Sender: FDA-Public Use
  Company Number: PHHY2012BR062236

PATIENT
  Sex: Female
  Weight: 55 kg

DRUGS (1)
  1. EXELON [Suspect]
     Indication: DEMENTIA ALZHEIMER'S TYPE
     Dosage: 1 DF (UNKNOWN), BID (MORNING + NIGHT)
     Route: 048
     Dates: start: 20090101

REACTIONS (2)
  - ISCHAEMIA [None]
  - ANXIETY [None]
